FAERS Safety Report 11101810 (Version 1)
Quarter: 2015Q2

REPORT INFORMATION
  Report Type: Spontaneous
  Country: GB (occurrence: GB)
  Receive Date: 20150509
  Receipt Date: 20150509
  Transmission Date: 20150821
  Serious: Yes (Hospitalization)
  Sender: FDA-Public Use
  Company Number: GB-ASTRAZENECA-2015SE41116

PATIENT
  Age: 71 Year
  Sex: Male
  Weight: 94 kg

DRUGS (2)
  1. DIABETES MEDICATION [Concomitant]
     Active Substance: UNSPECIFIED INGREDIENT
  2. FORXIGA [Suspect]
     Active Substance: DAPAGLIFLOZIN
     Route: 048
     Dates: start: 20150216, end: 20150401

REACTIONS (1)
  - Acute kidney injury [Recovered/Resolved with Sequelae]
